FAERS Safety Report 17853485 (Version 1)
Quarter: 2020Q2

REPORT INFORMATION
  Report Type: Spontaneous
  Country: US (occurrence: US)
  Receive Date: 20200602
  Receipt Date: 20200602
  Transmission Date: 20200714
  Serious: No
  Sender: FDA-Public Use
  Company Number: US-TEVA-2020-US-1237224

PATIENT
  Sex: Female

DRUGS (10)
  1. AUSTEDO [Suspect]
     Active Substance: DEUTETRABENAZINE
     Dosage: PAST DOSING REGIMEN
     Route: 048
  2. RISPERDAL [Concomitant]
     Active Substance: RISPERIDONE
  3. VITAMIN D-400 [Concomitant]
  4. AUSTEDO [Suspect]
     Active Substance: DEUTETRABENAZINE
     Indication: DYSKINESIA
     Route: 048
     Dates: start: 20191109
  5. AUSTEDO [Suspect]
     Active Substance: DEUTETRABENAZINE
     Dosage: DOSE CHANGED
     Route: 048
  6. LEXAPRO [Concomitant]
     Active Substance: ESCITALOPRAM OXALATE
  7. NORVASC [Concomitant]
     Active Substance: AMLODIPINE BESYLATE
  8. AUSTEDO [Suspect]
     Active Substance: DEUTETRABENAZINE
     Dosage: 18 MILLIGRAM DAILY; CURRENT DOSE
     Route: 048
  9. COQ10 [Concomitant]
     Active Substance: UBIDECARENONE
  10. OMEGA 3-6-9 [Concomitant]
     Active Substance: FISH OIL

REACTIONS (3)
  - Fatigue [Unknown]
  - Asthenia [Unknown]
  - Drug tolerance [Unknown]
